FAERS Safety Report 7274565 (Version 2)
Quarter: 2013Q1

REPORT INFORMATION
  Report Type: Report from Study
  Country: PE (occurrence: PE)
  Receive Date: 20100209
  Receipt Date: 20130312
  Transmission Date: 20140127
  Serious: Yes (Death, Hospitalization)
  Sender: FDA-Public Use
  Company Number: PE-MEDIMMUNE-MEDI-0009254

PATIENT
  Age: 5 Month
  Sex: Male
  Weight: 2.3 kg

DRUGS (3)
  1. SYNAGIS [Suspect]
     Indication: ANTIVIRAL PROPHYLAXIS
     Route: 030
     Dates: start: 20090427, end: 20090427
  2. SYNAGIS [Suspect]
     Indication: ANTIVIRAL PROPHYLAXIS
     Route: 030
     Dates: start: 20090717, end: 20090717
  3. SYNAGIS [Suspect]
     Indication: ANTIVIRAL PROPHYLAXIS
     Route: 030
     Dates: start: 20090819, end: 20090819

REACTIONS (12)
  - Pseudomonal sepsis [Not Recovered/Not Resolved]
  - Chronic obstructive pulmonary disease [Not Recovered/Not Resolved]
  - Pseudomembranous colitis [Not Recovered/Not Resolved]
  - Urinary tract infection pseudomonal [Not Recovered/Not Resolved]
  - Dyspnoea [Unknown]
  - Dyspnoea [Unknown]
  - Cyanosis [Recovered/Resolved]
  - Irritability [Unknown]
  - Wheezing [Unknown]
  - Bronchial obstruction [Fatal]
  - Respiratory failure [Fatal]
  - Pneumonia respiratory syncytial viral [Fatal]
